FAERS Safety Report 20140264 (Version 1)
Quarter: 2021Q4

REPORT INFORMATION
  Report Type: Spontaneous
  Country: US (occurrence: None)
  Receive Date: 20211202
  Receipt Date: 20211202
  Transmission Date: 20220303
  Serious: Yes (Hospitalization)
  Sender: FDA-Public Use
  Company Number: None

PATIENT
  Sex: Female
  Weight: 75 kg

DRUGS (3)
  1. ONIVYDE [Suspect]
     Active Substance: IRINOTECAN HYDROCHLORIDE
     Dates: end: 20211013
  2. FLUOROURACIL [Suspect]
     Active Substance: FLUOROURACIL
     Dates: end: 20211015
  3. LEUCOVORIN CALCIUM [Suspect]
     Active Substance: LEUCOVORIN CALCIUM
     Dates: end: 20211013

REACTIONS (10)
  - Pancreatic carcinoma [None]
  - Peripheral swelling [None]
  - Cardiac failure congestive [None]
  - Pulmonary embolism [None]
  - Deep vein thrombosis [None]
  - Asthenia [None]
  - Tachypnoea [None]
  - Hypotension [None]
  - Acute kidney injury [None]
  - Hypervolaemia [None]

NARRATIVE: CASE EVENT DATE: 20211101
